FAERS Safety Report 25002090 (Version 2)
Quarter: 2025Q1

REPORT INFORMATION
  Report Type: Spontaneous
  Country: DE (occurrence: DE)
  Receive Date: 20250224
  Receipt Date: 20250331
  Transmission Date: 20250408
  Serious: Yes (Congenital Anomaly, Other)
  Sender: Kenvue
  Company Number: DE-EMB-M202305185-1

PATIENT

DRUGS (9)
  1. LOPERAMIDE HYDROCHLORIDE [Suspect]
     Active Substance: LOPERAMIDE HYDROCHLORIDE
     Indication: Diarrhoea
     Route: 064
     Dates: start: 202211, end: 202307
  2. DULOXETINE [Suspect]
     Active Substance: DULOXETINE
     Indication: Paraesthesia
     Route: 064
     Dates: start: 202211, end: 202307
  3. METOPROLOL [Suspect]
     Active Substance: METOPROLOL
     Indication: Sinus tachycardia
     Route: 064
     Dates: start: 202211, end: 202307
  4. METOPROLOL [Suspect]
     Active Substance: METOPROLOL
     Indication: Mitral valve incompetence
  5. CHOLECALCIFEROL [Suspect]
     Active Substance: CHOLECALCIFEROL
     Indication: Product used for unknown indication
     Route: 064
     Dates: start: 202211, end: 202307
  6. BOOSTRIX POLIO [Concomitant]
     Active Substance: DIPHTHERIA AND TETANUS TOXOIDS AND ACELLULAR PERTUSSIS ADSORBED AND INACTIVATED POLIOVIRUS VACCINE
     Indication: Immunisation
     Route: 064
     Dates: start: 202306, end: 202306
  7. BOOSTRIX [Concomitant]
     Active Substance: TETANUS TOXOID, REDUCED DIPHTHERIA TOXOID AND ACELLULAR PERTUSSIS VACCINE, ADSORBED ANTIGENS
     Indication: Immunisation
     Route: 064
     Dates: start: 202306, end: 202306
  8. PROGESTERONE [Concomitant]
     Active Substance: PROGESTERONE
     Indication: Cervical incompetence
     Route: 064
  9. VAXIGRIPTETRA [Concomitant]
     Active Substance: INFLUENZA VIRUS VACCINE QUADRIVALENT TYPE A+B
     Indication: Immunisation
     Route: 064
     Dates: start: 202303, end: 202303

REACTIONS (3)
  - Bicuspid aortic valve [Unknown]
  - Atrial septal defect [Not Recovered/Not Resolved]
  - Foetal exposure during pregnancy [Unknown]

NARRATIVE: CASE EVENT DATE: 20230801
